FAERS Safety Report 16755668 (Version 1)
Quarter: 2019Q3

REPORT INFORMATION
  Report Type: Spontaneous
  Country: US (occurrence: US)
  Receive Date: 20190829
  Receipt Date: 20190829
  Transmission Date: 20191005
  Serious: No
  Sender: FDA-Public Use
  Company Number: US-ENDO PHARMACEUTICALS INC-2019-102820

PATIENT
  Sex: Male
  Weight: 81.65 kg

DRUGS (2)
  1. PREDNISONE. [Suspect]
     Active Substance: PREDNISONE
     Indication: PSORIATIC ARTHROPATHY
     Dosage: 50 MG, DAILY
     Route: 048
     Dates: start: 2016
  2. PREDNISONE. [Suspect]
     Active Substance: PREDNISONE
     Dosage: 1 OR 2 TABLETS BY MOUTH
     Route: 048

REACTIONS (2)
  - Psychiatric symptom [Unknown]
  - Psoriatic arthropathy [Not Recovered/Not Resolved]
